FAERS Safety Report 8297179-0 (Version None)
Quarter: 2012Q2

REPORT INFORMATION
  Report Type: 
  Country: None (occurrence: None)
  Receive Date: 20120419
  Receipt Date: 20120416
  Transmission Date: 20120825
  Serious: No
  Sender: FDA-Public Use
  Company Number: US-PFIZER INC-2012094523

PATIENT
  Sex: Male
  Weight: 63.492 kg

DRUGS (1)
  1. AZITHROMYCIN [Suspect]
     Indication: SINUSITIS
     Dosage: 500 MG, 2X/DAY
     Dates: start: 20120330, end: 20120401

REACTIONS (7)
  - DEHYDRATION [None]
  - DRUG INEFFECTIVE [None]
  - COLITIS [None]
  - DIARRHOEA [None]
  - OEDEMA PERIPHERAL [None]
  - WEIGHT DECREASED [None]
  - SWELLING FACE [None]
